FAERS Safety Report 4799184-5 (Version None)
Quarter: 2005Q4

REPORT INFORMATION
  Report Type: 
  Country: None (occurrence: None)
  Receive Date: 20051013
  Receipt Date: 20050927
  Transmission Date: 20060501
  Serious: Yes (Hospitalization)
  Sender: FDA-Public Use
  Company Number: DE-2005-013656

PATIENT
  Age: 30 Year
  Sex: Female

DRUGS (1)
  1. MIRENA [Suspect]
     Dosage: 20 UG/DAY, CONT, INTRA-UTERINE
     Route: 015
     Dates: start: 20050506

REACTIONS (9)
  - ABDOMINAL PAIN [None]
  - BACK PAIN [None]
  - GENITAL PRURITUS FEMALE [None]
  - HAEMORRHAGE [None]
  - INJECTION SITE ABSCESS [None]
  - JOINT ABSCESS [None]
  - PELVIC ABSCESS [None]
  - PELVIC INFECTION [None]
  - VULVITIS [None]
